FAERS Safety Report 11932401 (Version 15)
Quarter: 2020Q1

REPORT INFORMATION
  Report Type: Report from Study
  Country: FR (occurrence: FR)
  Receive Date: 20160120
  Receipt Date: 20200207
  Transmission Date: 20200409
  Serious: Yes (Hospitalization, Other)
  Sender: FDA-Public Use
  Company Number: PHHY2015FR164100

PATIENT
  Age: 48 Year
  Sex: Male
  Weight: 67 kg

DRUGS (18)
  1. PROGRAF [Concomitant]
     Active Substance: TACROLIMUS
     Indication: LIVER TRANSPLANT
     Dosage: 1 MG, QD
     Route: 065
     Dates: start: 20151119, end: 20151202
  2. MYFORTIC [Suspect]
     Active Substance: MYCOPHENOLATE SODIUM
     Dosage: 360 MG, BID (IN MORNING)
     Route: 065
     Dates: start: 2017
  3. ADVAGRAF [Concomitant]
     Active Substance: TACROLIMUS
     Dosage: 1.5 MG, QD
     Route: 065
     Dates: start: 20141202, end: 20151116
  4. STABLON [Concomitant]
     Active Substance: TIANEPTINE
     Indication: DEPRESSION
     Dosage: 1 DF, TID
     Route: 065
  5. RANITIDINE. [Concomitant]
     Active Substance: RANITIDINE
     Indication: PRODUCT USED FOR UNKNOWN INDICATION
     Dosage: 1 DF, BID
     Route: 065
  6. ADVAGRAF [Concomitant]
     Active Substance: TACROLIMUS
     Indication: LIVER TRANSPLANT
     Dosage: 1 MG, QD (IN MORNING)
     Route: 065
  7. ADVAGRAF [Concomitant]
     Active Substance: TACROLIMUS
     Dosage: 1.5 MG, QD
     Route: 065
     Dates: start: 20151216
  8. MYFORTIC [Suspect]
     Active Substance: MYCOPHENOLATE SODIUM
     Indication: LIVER TRANSPLANT
     Dosage: 1440 MG, QD
     Route: 065
     Dates: start: 20130816, end: 20151116
  9. MYFORTIC [Suspect]
     Active Substance: MYCOPHENOLATE SODIUM
     Indication: IMMUNOSUPPRESSANT DRUG THERAPY
     Dosage: 1440 MG, QD
     Route: 065
     Dates: start: 20151121, end: 2017
  10. NO TREATMENT RECEIVED [Suspect]
     Active Substance: UNSPECIFIED INGREDIENT
     Indication: PROPHYLAXIS AGAINST TRANSPLANT REJECTION
     Dosage: UNK
     Route: 065
  11. ADVAGRAF [Concomitant]
     Active Substance: TACROLIMUS
     Dosage: 1 MG, QD
     Route: 065
     Dates: start: 20180616
  12. ADVAGRAF [Concomitant]
     Active Substance: TACROLIMUS
     Dosage: 1.5 MG, QD
     Route: 065
     Dates: start: 20151203, end: 20151204
  13. ADVAGRAF [Concomitant]
     Active Substance: TACROLIMUS
     Dosage: 2 MG, QD
     Route: 065
     Dates: start: 20151205, end: 20151215
  14. ADVAGRAF [Concomitant]
     Active Substance: TACROLIMUS
     Dosage: 1.5 MG, QD
     Route: 065
     Dates: start: 20180605
  15. PROGRAF [Concomitant]
     Active Substance: TACROLIMUS
     Indication: IMMUNOSUPPRESSANT DRUG THERAPY
  16. DIFFU-K [Concomitant]
     Active Substance: POTASSIUM CHLORIDE
     Indication: PRODUCT USED FOR UNKNOWN INDICATION
     Route: 065
  17. ADVAGRAF [Concomitant]
     Active Substance: TACROLIMUS
     Indication: IMMUNOSUPPRESSANT DRUG THERAPY
     Dosage: 2 MG, QD
     Route: 065
     Dates: start: 20140124, end: 20141128
  18. ADVAGRAF [Concomitant]
     Active Substance: TACROLIMUS
     Dosage: 2 MG, QD
     Route: 065
     Dates: start: 20141130, end: 20141201

REACTIONS (47)
  - Asthenia [Not Recovered/Not Resolved]
  - Hepatic failure [Not Recovered/Not Resolved]
  - Systemic inflammatory response syndrome [Unknown]
  - Escherichia bacteraemia [Recovered/Resolved]
  - Jaundice [Not Recovered/Not Resolved]
  - Hypotension [Unknown]
  - Liver abscess [Unknown]
  - General physical health deterioration [Not Recovered/Not Resolved]
  - Cough [Recovered/Resolved]
  - Hepatitis alcoholic [Unknown]
  - Cholelithiasis [Recovering/Resolving]
  - Decreased appetite [Unknown]
  - Septic shock [Recovering/Resolving]
  - Disorientation [Unknown]
  - Pseudomonas infection [Recovered/Resolved]
  - Chills [Unknown]
  - Cholangitis [Recovered/Resolved]
  - Asterixis [Recovered/Resolved]
  - Hypokalaemia [Recovered/Resolved]
  - Pyrexia [Not Recovered/Not Resolved]
  - Jaundice [Recovered/Resolved]
  - Hepatitis alcoholic [Recovered/Resolved]
  - Hepatic encephalopathy [Recovered/Resolved]
  - Infection [Unknown]
  - Cough [Not Recovered/Not Resolved]
  - Alcohol abuse [Recovered/Resolved]
  - Malnutrition [Recovering/Resolving]
  - Anaemia [Recovering/Resolving]
  - Prothrombin time ratio increased [Not Recovered/Not Resolved]
  - Acute kidney injury [Recovered/Resolved]
  - Tachycardia [Unknown]
  - Sepsis [Unknown]
  - Pyrexia [Recovered/Resolved]
  - Decreased appetite [Recovered/Resolved]
  - Asthenia [Recovered/Resolved]
  - Psychomotor retardation [Recovered/Resolved]
  - Cholestasis [Recovering/Resolving]
  - Anaemia folate deficiency [Recovering/Resolving]
  - Cirrhosis alcoholic [Not Recovered/Not Resolved]
  - Oedema peripheral [Unknown]
  - Biliary anastomosis complication [Not Recovered/Not Resolved]
  - Haemodynamic instability [Unknown]
  - Peptic ulcer [Recovered/Resolved]
  - Tachypnoea [Unknown]
  - Abdominal pain [Unknown]
  - Hepatic encephalopathy [Recovered/Resolved]
  - Blood glucose abnormal [Unknown]

NARRATIVE: CASE EVENT DATE: 20140319
